FAERS Safety Report 12184704 (Version 4)
Quarter: 2016Q2

REPORT INFORMATION
  Report Type: Report from Study
  Country: CO (occurrence: CO)
  Receive Date: 20160316
  Receipt Date: 20160623
  Transmission Date: 20160815
  Serious: Yes (Death, Disabling, Other)
  Sender: FDA-Public Use
  Company Number: CO-JNJFOC-20160310270

PATIENT
  Age: 58 Year
  Sex: Female
  Weight: 71 kg

DRUGS (1)
  1. RISPERDAL CONSTA [Suspect]
     Active Substance: RISPERIDONE
     Indication: SCHIZOPHRENIA
     Route: 030
     Dates: start: 20130615, end: 20160609

REACTIONS (10)
  - Neoplasm malignant [Not Recovered/Not Resolved]
  - General physical health deterioration [Not Recovered/Not Resolved]
  - Pain [Not Recovered/Not Resolved]
  - Inappropriate schedule of drug administration [Unknown]
  - Speech disorder [Not Recovered/Not Resolved]
  - Off label use [Unknown]
  - Brain neoplasm malignant [Fatal]
  - Pain in extremity [Unknown]
  - Disorientation [Not Recovered/Not Resolved]
  - Gait disturbance [Not Recovered/Not Resolved]

NARRATIVE: CASE EVENT DATE: 20130615
